FAERS Safety Report 8117843-3 (Version None)
Quarter: 2012Q1

REPORT INFORMATION
  Report Type: 
  Country: None (occurrence: None)
  Receive Date: 20120207
  Receipt Date: 20120131
  Transmission Date: 20120608
  Serious: Yes (Other)
  Sender: FDA-Public Use
  Company Number: BR-US-EMD SERONO, INC.-7110783

PATIENT
  Sex: Female

DRUGS (2)
  1. REBIF [Suspect]
     Indication: RELAPSING-REMITTING MULTIPLE SCLEROSIS
     Dates: start: 20090914, end: 20110901
  2. REBIF [Suspect]
     Dates: start: 20120111

REACTIONS (4)
  - HYPOAESTHESIA [None]
  - FEELING COLD [None]
  - MENISCUS LESION [None]
  - MULTIPLE SCLEROSIS RELAPSE [None]
